FAERS Safety Report 6169582-6 (Version None)
Quarter: 2009Q2

REPORT INFORMATION
  Report Type: 
  Country: None (occurrence: None)
  Receive Date: 20090428
  Receipt Date: 20090420
  Transmission Date: 20091009
  Serious: Yes (Other)
  Sender: FDA-Public Use
  Company Number: FR-BRISTOL-MYERS SQUIBB COMPANY-14095483

PATIENT
  Age: 53 Year
  Sex: Female

DRUGS (2)
  1. LYSODREN [Suspect]
     Indication: ADRENOCORTICAL CARCINOMA
     Dosage: MEDICATION TAKEN SINCE 1 WEEK
     Dates: start: 20080214
  2. HYDROCORTISONE [Concomitant]
     Dates: start: 20071201

REACTIONS (19)
  - ANOREXIA [None]
  - ARTHRALGIA [None]
  - ASTHENIA [None]
  - BALANCE DISORDER [None]
  - DEPRESSION [None]
  - DIARRHOEA [None]
  - DIZZINESS [None]
  - FEELING DRUNK [None]
  - FOLATE DEFICIENCY [None]
  - GAIT DISTURBANCE [None]
  - GASTROINTESTINAL DISORDER [None]
  - IRON DEFICIENCY [None]
  - IRON DEFICIENCY ANAEMIA [None]
  - MEAN CELL VOLUME INCREASED [None]
  - MYALGIA [None]
  - NAUSEA [None]
  - RASH [None]
  - VITAMIN B12 DEFICIENCY [None]
  - WEIGHT DECREASED [None]
